FAERS Safety Report 12059514 (Version 1)
Quarter: 2016Q1

REPORT INFORMATION
  Report Type: Spontaneous
  Country: US (occurrence: None)
  Receive Date: 20160209
  Receipt Date: 20160209
  Transmission Date: 20160526
  Serious: Yes (Hospitalization)
  Sender: FDA-Public Use
  Company Number: None

PATIENT
  Age: 21 Year
  Sex: Female
  Weight: 35 kg

DRUGS (2)
  1. RALTEGRAVIR. [Suspect]
     Active Substance: RALTEGRAVIR
     Indication: HIV INFECTION
     Route: 048
     Dates: start: 20150806, end: 20160118
  2. RITONAVIR. [Suspect]
     Active Substance: RITONAVIR
     Indication: HIV INFECTION
     Route: 048
     Dates: start: 20150806, end: 20160118

REACTIONS (14)
  - Treatment noncompliance [None]
  - Anaemia [None]
  - Electrolyte imbalance [None]
  - Weight decreased [None]
  - Vomiting [None]
  - Hypercalcaemia [None]
  - Hypophosphataemia [None]
  - Blood urea increased [None]
  - Meningitis cryptococcal [None]
  - Dystonia [None]
  - Blood creatinine increased [None]
  - Asthenia [None]
  - Seizure [None]
  - Dehydration [None]

NARRATIVE: CASE EVENT DATE: 20160118
